FAERS Safety Report 6921963-6 (Version None)
Quarter: 2010Q3

REPORT INFORMATION
  Report Type: 
  Country: None (occurrence: None)
  Receive Date: 20100812
  Receipt Date: 20100729
  Transmission Date: 20110219
  Serious: Yes (Other)
  Sender: FDA-Public Use
  Company Number: DE-MYLANLABS-2010S1013758

PATIENT
  Age: 55 Year
  Sex: Male
  Weight: 104 kg

DRUGS (4)
  1. SIMVASTATIN [Suspect]
     Indication: LOW DENSITY LIPOPROTEIN INCREASED
     Route: 048
     Dates: start: 20090812, end: 20090902
  2. LOCOL [Concomitant]
     Indication: LOW DENSITY LIPOPROTEIN INCREASED
     Route: 048
     Dates: start: 20090903, end: 20090904
  3. EZETIMIBE [Concomitant]
     Indication: LOW DENSITY LIPOPROTEIN INCREASED
     Route: 048
     Dates: start: 20090907
  4. TREDAPTIVE [Concomitant]
     Indication: LOW DENSITY LIPOPROTEIN INCREASED
     Route: 048
     Dates: start: 20090902

REACTIONS (3)
  - LIBIDO DECREASED [None]
  - MYALGIA [None]
  - PSORIASIS [None]
